FAERS Safety Report 13689250 (Version 3)
Quarter: 2017Q4

REPORT INFORMATION
  Report Type: Spontaneous
  Country: DE (occurrence: DE)
  Receive Date: 20170626
  Receipt Date: 20171103
  Transmission Date: 20180320
  Serious: Yes (Disabling, Other)
  Sender: FDA-Public Use
  Company Number: DE-BAYER-2017-116513

PATIENT
  Age: 32 Year
  Sex: Female
  Weight: 70 kg

DRUGS (1)
  1. MIRENA [Suspect]
     Active Substance: LEVONORGESTREL
     Dosage: 20 MCG/24HR, CONT
     Route: 015
     Dates: end: 2012

REACTIONS (14)
  - Weight loss poor [None]
  - Weight increased [Not Recovered/Not Resolved]
  - Hormone level abnormal [Not Recovered/Not Resolved]
  - Depression [Not Recovered/Not Resolved]
  - Progesterone decreased [Not Recovered/Not Resolved]
  - Device use issue [None]
  - Urinary tract inflammation [Not Recovered/Not Resolved]
  - Premature baby [Not Recovered/Not Resolved]
  - Personality change [Not Recovered/Not Resolved]
  - Blood oestrogen increased [Not Recovered/Not Resolved]
  - Alopecia [Not Recovered/Not Resolved]
  - Hypothyroidism [Not Recovered/Not Resolved]
  - Panic attack [Not Recovered/Not Resolved]
  - Uterine leiomyoma [Not Recovered/Not Resolved]

NARRATIVE: CASE EVENT DATE: 20040201
